FAERS Safety Report 8584793-8 (Version None)
Quarter: 2012Q2

REPORT INFORMATION
  Report Type: 
  Country: None (occurrence: None)
  Receive Date: 20120423
  Receipt Date: 20091123
  Transmission Date: 20120825
  Serious: Yes (Other)
  Sender: FDA-Public Use
  Company Number: PHEH2009US14501

PATIENT
  Age: 52 Year
  Sex: Male
  Weight: 57.3 kg

DRUGS (17)
  1. VIAGRA [Concomitant]
  2. VITAMIN E [Concomitant]
  3. CELEBREX [Concomitant]
  4. IBUPROFEN [Concomitant]
  5. LANTUS [Concomitant]
  6. STROVITE (ASCORBIC ACID, CYANOCOBALAMIN, FOLIC ACID, NICOTINIC ACID, P [Concomitant]
  7. APIDRA [Concomitant]
  8. FOLIC ACID [Concomitant]
  9. EXJADE [Suspect]
     Indication: IRON OVERLOAD
     Dosage: 1125 MG, QD, ORAL
     Route: 048
     Dates: start: 20060501, end: 20091013
  10. EXJADE [Suspect]
     Indication: ANAEMIA
     Dosage: 1125 MG, QD, ORAL
     Route: 048
     Dates: start: 20060501, end: 20091013
  11. EXJADE [Suspect]
     Indication: MYELODYSPLASTIC SYNDROME
     Dosage: 1125 MG, QD, ORAL
     Route: 048
     Dates: start: 20060501, end: 20091013
  12. LOVENOX [Concomitant]
  13. LISINOPRIL [Concomitant]
  14. SINGULAIR [Concomitant]
  15. ASPIRIN [Concomitant]
  16. CALCIUM WITH VITAMIN D (CALCIUM PHOSPHATE, CALCIUM SODIUM LACTATE, ERG [Concomitant]
  17. VICODIN [Concomitant]

REACTIONS (1)
  - DEAFNESS UNILATERAL [None]
